FAERS Safety Report 8221835-3 (Version None)
Quarter: 2012Q1

REPORT INFORMATION
  Report Type: 
  Country: None (occurrence: None)
  Receive Date: 20120315
  Receipt Date: 20120305
  Transmission Date: 20120608
  Serious: Yes (Disabling)
  Sender: FDA-Public Use
  Company Number: 2012SP012481

PATIENT
  Age: 62 Year
  Sex: Male

DRUGS (3)
  1. VICTRELIS [Suspect]
     Indication: HEPATITIS C
     Dosage: 800 MG; TID;
     Dates: start: 20111118
  2. RIBASPHERE [Suspect]
     Indication: HEPATITIS C
  3. PEG-INTRON [Suspect]
     Indication: HEPATITIS C
     Dosage: 800 MG;TID

REACTIONS (5)
  - RASH GENERALISED [None]
  - FATIGUE [None]
  - DECREASED APPETITE [None]
  - MOUTH ULCERATION [None]
  - IMPAIRED WORK ABILITY [None]
